FAERS Safety Report 16887333 (Version 1)
Quarter: 2019Q4

REPORT INFORMATION
  Report Type: Spontaneous
  Country: NO (occurrence: NO)
  Receive Date: 20191004
  Receipt Date: 20191004
  Transmission Date: 20200122
  Serious: Yes (Other)
  Sender: FDA-Public Use
  Company Number: NO-JNJFOC-20190934139

PATIENT
  Sex: Male

DRUGS (2)
  1. ROACUTAN [Suspect]
     Active Substance: ISOTRETINOIN
     Indication: ACNE
     Route: 065
  2. INFLIXIMAB, RECOMBINANT [Suspect]
     Active Substance: INFLIXIMAB
     Indication: PRODUCT USED FOR UNKNOWN INDICATION
     Route: 042

REACTIONS (3)
  - Pain [Recovered/Resolved]
  - Gastrointestinal mucosal exfoliation [Recovered/Resolved]
  - Gastrointestinal inflammation [Recovered/Resolved]
